FAERS Safety Report 7102178-8 (Version None)
Quarter: 2010Q4

REPORT INFORMATION
  Report Type: 
  Country: None (occurrence: None)
  Receive Date: 20101115
  Receipt Date: 20101105
  Transmission Date: 20110411
  Serious: No
  Sender: FDA-Public Use
  Company Number: US-BIOGENIDEC-2010BI009645

PATIENT
  Age: 44 Year
  Sex: Female

DRUGS (1)
  1. TYSABRI [Suspect]
     Indication: MULTIPLE SCLEROSIS
     Route: 042
     Dates: start: 20070920

REACTIONS (5)
  - CENTRAL VENOUS CATHETERISATION [None]
  - GAIT DISTURBANCE [None]
  - PERONEAL NERVE PALSY [None]
  - RESPIRATORY TRACT CONGESTION [None]
  - SINUS CONGESTION [None]
